FAERS Safety Report 23167772 (Version 1)
Quarter: 2023Q4

REPORT INFORMATION
  Report Type: Spontaneous
  Country: US (occurrence: US)
  Receive Date: 20231109
  Receipt Date: 20231109
  Transmission Date: 20240110
  Serious: Yes (Other)
  Sender: FDA-Public Use
  Company Number: US-BAYER-2023A157517

PATIENT
  Sex: Female

DRUGS (1)
  1. MILK OF MAGNESIA MINT [Suspect]
     Active Substance: MAGNESIUM HYDROXIDE
     Indication: Abdominal discomfort
     Route: 048

REACTIONS (3)
  - Coeliac disease [Unknown]
  - Constipation [Unknown]
  - Incorrect product administration duration [Unknown]
